FAERS Safety Report 7312984-2 (Version None)
Quarter: 2011Q1

REPORT INFORMATION
  Report Type: 
  Country: None (occurrence: None)
  Receive Date: 20110224
  Receipt Date: 20110210
  Transmission Date: 20110831
  Serious: Yes (Hospitalization)
  Sender: FDA-Public Use
  Company Number: FR-MYLANLABS-2011S1003101

PATIENT
  Age: 34 Year
  Sex: Male
  Weight: 62 kg

DRUGS (19)
  1. COLCHICINE [Interacting]
     Indication: GOUT
     Dosage: ON FIRST DAY
     Route: 065
     Dates: start: 20091020, end: 20091028
  2. COLCHICINE [Interacting]
     Dosage: ON SECOND AND THIRD DAYS
     Route: 065
     Dates: start: 20091020, end: 20091028
  3. COTRIM [Concomitant]
     Dosage: 400MG/80MG 3 TABLETS PER WEEK
     Route: 065
  4. FERROUS ASCORBATE [Concomitant]
     Route: 065
  5. ESOMEPRAZOLE [Concomitant]
     Route: 065
  6. EVEROLIMUS [Concomitant]
     Indication: HEART AND LUNG TRANSPLANT
     Route: 065
  7. PANCREATIN [Concomitant]
     Route: 065
  8. AZITHROMYCIN [Interacting]
     Indication: BRONCHIOLITIS
     Route: 065
  9. PRAVASTATIN [Suspect]
     Indication: CORONARY ARTERY DISEASE
     Route: 065
  10. HYDROCORTISONE [Concomitant]
     Indication: HEART AND LUNG TRANSPLANT
     Route: 065
  11. NICORANDIL [Concomitant]
     Indication: CORONARY ARTERY DISEASE
     Route: 065
  12. CYCLOSPORINE [Interacting]
     Indication: HEART AND LUNG TRANSPLANT
     Route: 065
  13. CALCIUM [Concomitant]
     Route: 065
  14. COLISTIN SULFATE [Concomitant]
     Indication: BRONCHIOLITIS
     Dosage: TWO SPRAYERS PER DAY
     Route: 065
  15. COLECALCIFEROL [Concomitant]
     Route: 065
  16. COLCHICINE [Interacting]
     Dosage: FROM FOURTH DAY; FOR 6 DAYS.
     Route: 065
     Dates: start: 20091020, end: 20091028
  17. IRBESARTAN [Concomitant]
     Indication: CORONARY ARTERY DISEASE
     Route: 065
  18. LYSINE ACETYLSALICYLIC [Concomitant]
     Indication: CORONARY ARTERY DISEASE
     Route: 065
  19. TOCOPHEROL CONCENTRATE CAP [Concomitant]
     Route: 065

REACTIONS (6)
  - RHABDOMYOLYSIS [None]
  - ACUTE RESPIRATORY FAILURE [None]
  - DRUG INTERACTION [None]
  - CYTOLYTIC HEPATITIS [None]
  - LEFT VENTRICULAR FAILURE [None]
  - RENAL FAILURE [None]
